FAERS Safety Report 10417657 (Version 1)
Quarter: 2014Q2

REPORT INFORMATION
  Report Type: Spontaneous
  Country: US (occurrence: None)
  Receive Date: 20140609
  Receipt Date: 20140609
  Transmission Date: 20141212
  Serious: No
  Sender: FDA-Public Use
  Company Number: 2013TUS002329

PATIENT
  Sex: Female

DRUGS (1)
  1. BRINTELLIX [Suspect]
     Indication: DEPRESSION
     Route: 048
     Dates: start: 20131107, end: 20131111

REACTIONS (4)
  - Fatigue [None]
  - Apathy [None]
  - Feeling abnormal [None]
  - Nausea [None]
